FAERS Safety Report 17298907 (Version 1)
Quarter: 2020Q1

REPORT INFORMATION
  Report Type: Spontaneous
  Country: US (occurrence: US)
  Receive Date: 20200122
  Receipt Date: 20200122
  Transmission Date: 20200409
  Serious: No
  Sender: FDA-Public Use
  Company Number: US-MYLANLABS-2020M1002587

PATIENT
  Sex: Male
  Weight: 107 kg

DRUGS (1)
  1. LIDOCAINE PATCH [Suspect]
     Active Substance: LIDOCAINE
     Indication: PROCEDURAL PAIN
     Dosage: ONCE DAILY
     Route: 061
     Dates: start: 20191209, end: 20200104

REACTIONS (2)
  - Off label use [Recovered/Resolved]
  - Product adhesion issue [Not Recovered/Not Resolved]
